FAERS Safety Report 14105127 (Version 1)
Quarter: 2017Q4

REPORT INFORMATION
  Report Type: Spontaneous
  Country: US (occurrence: US)
  Receive Date: 20171018
  Receipt Date: 20171018
  Transmission Date: 20180321
  Serious: Yes (Other)
  Sender: FDA-Public Use
  Company Number: US-SA-A03200300824

PATIENT
  Age: 38 Year
  Sex: Female

DRUGS (2)
  1. CYCLOGYL [Concomitant]
     Active Substance: CYCLOPENTOLATE HYDROCHLORIDE
  2. PHENYLEPHRINE HYDROCHLORIDE. [Suspect]
     Active Substance: PHENYLEPHRINE HYDROCHLORIDE
     Indication: PROPHYLAXIS
     Dosage: DOSE TEXT: DOSE: ^3-5 DROPS IN PLEDGETS; FREQUENCY: ONCE.?UNIT DOSE:  NA
     Route: 047

REACTIONS (1)
  - Hypertension [Unknown]
